FAERS Safety Report 23815307 (Version 1)
Quarter: 2024Q2

REPORT INFORMATION
  Report Type: Spontaneous
  Country: CN (occurrence: CN)
  Receive Date: 20240503
  Receipt Date: 20240503
  Transmission Date: 20240716
  Serious: Yes (Life-Threatening, Hospitalization, Other)
  Sender: FDA-Public Use
  Company Number: None

PATIENT
  Age: 60 Year
  Sex: Male

DRUGS (4)
  1. CYCLOPHOSPHAMIDE [Suspect]
     Active Substance: CYCLOPHOSPHAMIDE
     Indication: B-cell lymphoma stage IV
     Dosage: 1.29 G, ONE TIME IN ONE DAY, DILUTED WITH 50 ML OF 0.9 % SODIUM CHLORIDE
     Route: 042
     Dates: start: 20240412, end: 20240412
  2. SODIUM CHLORIDE [Suspect]
     Active Substance: SODIUM CHLORIDE
     Indication: Medication dilution
     Dosage: 50 ML, ONE TIME IN ONE DAY, USED TO DILUTE 1.29 G OF CYCLOPHOSPHAMIDE
     Route: 042
     Dates: start: 20240412, end: 20240412
  3. SODIUM CHLORIDE [Suspect]
     Active Substance: SODIUM CHLORIDE
     Dosage: 250 ML, ONE TIME IN ONE DAY, USED TO DILUTE 138 MG OF EPIRUBICIN  HYDROCHLORIDE
     Route: 041
     Dates: start: 20240412, end: 20240412
  4. EPIRUBICIN HYDROCHLORIDE [Suspect]
     Active Substance: EPIRUBICIN HYDROCHLORIDE
     Indication: B-cell lymphoma stage IV
     Dosage: 138 MG, ONE TIME IN ONE DAY, DILUTED WITH 250 ML OF 0.9 % SODIUM CHLORIDE
     Route: 041
     Dates: start: 20240412, end: 20240412

REACTIONS (2)
  - Myelosuppression [Recovering/Resolving]
  - White blood cell count decreased [Recovered/Resolved]

NARRATIVE: CASE EVENT DATE: 20240422
